FAERS Safety Report 19520179 (Version 1)
Quarter: 2021Q3

REPORT INFORMATION
  Report Type: Spontaneous
  Country: TH (occurrence: TH)
  Receive Date: 20210712
  Receipt Date: 20210712
  Transmission Date: 20211014
  Serious: Yes (Other)
  Sender: FDA-Public Use
  Company Number: TH-TOLMAR, INC.-21TH028338

PATIENT
  Age: 78 Year
  Sex: Male

DRUGS (8)
  1. MOXIFLOXACIN. [Concomitant]
     Active Substance: MOXIFLOXACIN
     Indication: KERATITIS
     Dosage: 4 TIMES DAILY
  2. ACYCLOVIR. [Suspect]
     Active Substance: ACYCLOVIR
     Dosage: 500 MILLIGRAM, Q 8 HR
     Route: 042
  3. MOXIFLOXACIN. [Concomitant]
     Active Substance: MOXIFLOXACIN
     Dosage: 6 TIMES DAILY
  4. ACYCLOVIR. [Suspect]
     Active Substance: ACYCLOVIR
     Indication: KERATITIS
     Dosage: 400 MILLIGRAM, 5 TIMES DAILY
     Route: 048
  5. ACYCLOVIR. [Suspect]
     Active Substance: ACYCLOVIR
     Dosage: 400 MILLIGRAM, 5 TIMES DAILY
     Route: 048
  6. ACYCLOVIR. [Suspect]
     Active Substance: ACYCLOVIR
     Dosage: 400 MILLIGRAM, BID
     Route: 048
  7. ACYCLOVIR. [Suspect]
     Active Substance: ACYCLOVIR
     Dosage: 800 MILLIGRAM, 5 TIMES DAILY
     Route: 048
  8. ACYCLOVIR. [Suspect]
     Active Substance: ACYCLOVIR
     Dosage: 800 MILLIGRAM, BID
     Route: 048

REACTIONS (3)
  - Herpes ophthalmic [Recovered/Resolved]
  - Ulcerative keratitis [Recovered/Resolved]
  - Drug ineffective [Unknown]
